FAERS Safety Report 6329160-2 (Version None)
Quarter: 2009Q3

REPORT INFORMATION
  Report Type: 
  Country: None (occurrence: None)
  Receive Date: 20090826
  Receipt Date: 20081229
  Transmission Date: 20100115
  Serious: No
  Sender: FDA-Public Use
  Company Number: US-ASTRAZENECA-2005UW04142

PATIENT
  Age: 80 Year
  Sex: Female
  Weight: 45.4 kg

DRUGS (4)
  1. IRESSA [Suspect]
     Indication: NON-SMALL CELL LUNG CANCER
     Route: 048
     Dates: start: 20041101, end: 20050101
  2. POLYGAM S/D [Concomitant]
  3. ALBUTEROL [Concomitant]
  4. THEO-24 SKIN CREAM [Concomitant]

REACTIONS (4)
  - APHONIA [None]
  - DRY SKIN [None]
  - ONYCHOCLASIS [None]
  - RASH [None]
